FAERS Safety Report 5367009-5 (Version None)
Quarter: 2007Q2

REPORT INFORMATION
  Report Type: 
  Country: None (occurrence: None)
  Receive Date: 20070622
  Receipt Date: 20070613
  Transmission Date: 20071010
  Serious: Yes (Hospitalization)
  Sender: FDA-Public Use
  Company Number: JP-AVENTIS-200711606JP

PATIENT
  Age: 55 Year
  Sex: Male

DRUGS (2)
  1. LANTUS [Suspect]
     Indication: DIABETES MELLITUS
     Route: 058
     Dates: start: 20040201
  2. ISZILIN NPH [Concomitant]
     Indication: DIABETES MELLITUS
     Dates: end: 20040201

REACTIONS (1)
  - HEPATIC FUNCTION ABNORMAL [None]
